FAERS Safety Report 14984960 (Version 2)
Quarter: 2018Q2

REPORT INFORMATION
  Report Type: Spontaneous
  Country: GB (occurrence: GB)
  Receive Date: 20180607
  Receipt Date: 20180611
  Transmission Date: 20180711
  Serious: Yes (Other)
  Sender: FDA-Public Use
  Company Number: GB-PFIZER INC-2018226131

PATIENT
  Age: 39 Year
  Sex: Male

DRUGS (1)
  1. VIAGRA [Suspect]
     Active Substance: SILDENAFIL CITRATE
     Dosage: 35 DF (35 TABLETS)

REACTIONS (10)
  - Heart rate increased [Unknown]
  - Hypertension [Unknown]
  - Lacrimation increased [Unknown]
  - Erection increased [Recovering/Resolving]
  - Abdominal pain upper [Unknown]
  - Feeling abnormal [Unknown]
  - Intentional overdose [Unknown]
  - Headache [Unknown]
  - Malaise [Unknown]
  - Dysuria [Unknown]

NARRATIVE: CASE EVENT DATE: 201508
